FAERS Safety Report 7667785-2 (Version None)
Quarter: 2011Q3

REPORT INFORMATION
  Report Type: 
  Country: None (occurrence: None)
  Receive Date: 20110806
  Receipt Date: 20110303
  Transmission Date: 20111222
  Serious: No
  Sender: FDA-Public Use
  Company Number: US-ABBOTT-11P-163-0708882-00

PATIENT
  Sex: Male
  Weight: 125.3 kg

DRUGS (3)
  1. BENAZEPRIL/HCTZ [Concomitant]
     Indication: BLOOD PRESSURE
     Dosage: 10/12.5
  2. LOVAZA [Concomitant]
     Indication: PRODUCT USED FOR UNKNOWN INDICATION
  3. NIASPAN [Suspect]
     Indication: BLOOD CHOLESTEROL
     Dates: start: 20110303

REACTIONS (2)
  - HOT FLUSH [None]
  - PRURITUS [None]
